FAERS Safety Report 11871249 (Version 3)
Quarter: 2016Q1

REPORT INFORMATION
  Report Type: Spontaneous
  Country: US (occurrence: US)
  Receive Date: 20151228
  Receipt Date: 20160218
  Transmission Date: 20160526
  Serious: Yes (Other)
  Sender: FDA-Public Use
  Company Number: US-BAYER-2015-492864

PATIENT
  Age: 34 Year
  Sex: Female
  Weight: 56.24 kg

DRUGS (1)
  1. SKYLA [Suspect]
     Active Substance: LEVONORGESTREL
     Indication: CONTRACEPTION
     Dosage: 14 MCG/24HR, CONT
     Route: 015
     Dates: start: 20150611, end: 20151203

REACTIONS (4)
  - Drug ineffective [Recovered/Resolved]
  - Ectopic pregnancy with contraceptive device [Recovered/Resolved]
  - Pain [None]
  - Genital haemorrhage [None]

NARRATIVE: CASE EVENT DATE: 2015
